FAERS Safety Report 24012488 (Version 1)
Quarter: 2024Q2

REPORT INFORMATION
  Report Type: Report from Study
  Country: US (occurrence: US)
  Receive Date: 20240626
  Receipt Date: 20240626
  Transmission Date: 20240716
  Serious: Yes (Hospitalization, Other)
  Sender: FDA-Public Use
  Company Number: US-JAZZ PHARMACEUTICALS-2023-US-004195

PATIENT
  Age: 10 Year
  Sex: Female

DRUGS (4)
  1. EPIDIOLEX [Suspect]
     Active Substance: CANNABIDIOL
     Indication: Epilepsy
     Dosage: TAKE 0.7 ML BY MOUTH TWICE DAILY WITH FOOD FOR 1 WEEK THEN 1.4 ML BY MOUTH TWICE DAILY
     Route: 048
     Dates: start: 20230117
  2. EPIDIOLEX [Suspect]
     Active Substance: CANNABIDIOL
     Indication: Partial seizures
     Dosage: 4 MILLILITER, BID, FEEDING TUBE
     Dates: start: 20230101
  3. CLOBAZAM [Concomitant]
     Active Substance: CLOBAZAM
     Dosage: 10 MILLIGRAM
  4. RUFINAMIDE [Concomitant]
     Active Substance: RUFINAMIDE
     Dosage: 200 MILLIGRAM

REACTIONS (8)
  - Seizure cluster [Unknown]
  - Gastrooesophageal reflux disease [Not Recovered/Not Resolved]
  - Fall [Unknown]
  - Head injury [Not Recovered/Not Resolved]
  - Vomiting [Unknown]
  - Atonic seizures [Unknown]
  - Drug ineffective [Unknown]
  - Off label use [Unknown]

NARRATIVE: CASE EVENT DATE: 20230101
